FAERS Safety Report 8912451 (Version 1)
Quarter: 2012Q4

REPORT INFORMATION
  Report Type: Report from Study
  Country: PT (occurrence: PT)
  Receive Date: 20121116
  Receipt Date: 20121116
  Transmission Date: 20130627
  Serious: Yes (Hospitalization)
  Sender: FDA-Public Use
  Company Number: PT-009507513-1210PRT010084

PATIENT
  Age: 48 Year
  Sex: Male
  Weight: 78 kg

DRUGS (2)
  1. REBETOL [Suspect]
     Indication: HEPATITIS C
     Dosage: 600mg,800mg,qd
     Route: 048
     Dates: start: 20110408
  2. PEGINTERFERON ALFA-2A [Suspect]
     Indication: HEPATITIS C
     Dosage: 180 Microgram, qw
     Route: 058
     Dates: start: 20110408, end: 20120316

REACTIONS (4)
  - Nephrotic syndrome [Recovered/Resolved]
  - Nephrotic syndrome [Unknown]
  - Anaemia [Recovered/Resolved]
  - Anaemia [Recovered/Resolved]
